FAERS Safety Report 10193929 (Version 1)
Quarter: 2014Q2

REPORT INFORMATION
  Report Type: Spontaneous
  Country: US (occurrence: US)
  Receive Date: 20140524
  Receipt Date: 20140524
  Transmission Date: 20141212
  Serious: No
  Sender: FDA-Public Use
  Company Number: US-SANOFI-AVENTIS-2013SA072977

PATIENT
  Sex: Male

DRUGS (2)
  1. LANTUS [Suspect]
     Route: 065
  2. NOVOLOG [Suspect]
     Route: 065

REACTIONS (3)
  - Blood potassium decreased [Unknown]
  - Blood magnesium decreased [Unknown]
  - Blood glucose increased [Unknown]
